FAERS Safety Report 15197069 (Version 2)
Quarter: 2018Q3

REPORT INFORMATION
  Report Type: Spontaneous
  Country: US (occurrence: US)
  Receive Date: 20180725
  Receipt Date: 20180806
  Transmission Date: 20181010
  Serious: Yes (Other)
  Sender: FDA-Public Use
  Company Number: US-JNJFOC-20180725006

PATIENT
  Age: 72 Year
  Sex: Female

DRUGS (1)
  1. DOXORUBICIN HYDROCHLORIDE. [Suspect]
     Active Substance: DOXORUBICIN HYDROCHLORIDE
     Indication: TRANSITIONAL CELL CARCINOMA METASTATIC
     Route: 065

REACTIONS (8)
  - Fatigue [Unknown]
  - Off label use [Unknown]
  - Failure to thrive [Unknown]
  - Pancytopenia [Unknown]
  - Hypocalcaemia [Unknown]
  - Nausea [Unknown]
  - Diarrhoea [Unknown]
  - Product use in unapproved indication [Unknown]
